FAERS Safety Report 25659694 (Version 1)
Quarter: 2025Q3

REPORT INFORMATION
  Report Type: Report from Study
  Country: US (occurrence: US)
  Receive Date: 20250808
  Receipt Date: 20250808
  Transmission Date: 20251021
  Serious: Yes (Other)
  Sender: ALEXION PHARMACEUTICALS
  Company Number: US-AstraZeneca-CH-00925790A

PATIENT
  Sex: Male

DRUGS (1)
  1. OSIMERTINIB [Suspect]
     Active Substance: OSIMERTINIB
     Route: 065

REACTIONS (5)
  - Fatigue [Unknown]
  - Nocturia [Unknown]
  - Diabetes mellitus [Unknown]
  - Asthenia [Unknown]
  - Sleep disorder due to a general medical condition [Unknown]
